FAERS Safety Report 21154845 (Version 1)
Quarter: 2022Q3

REPORT INFORMATION
  Report Type: Spontaneous
  Country: US (occurrence: None)
  Receive Date: 20220729
  Receipt Date: 20220729
  Transmission Date: 20221026
  Serious: Yes (Hospitalization)
  Sender: FDA-Public Use
  Company Number: None

PATIENT
  Age: 84 Year
  Sex: Male
  Weight: 56 kg

DRUGS (2)
  1. NIVOLUMAB [Suspect]
     Active Substance: NIVOLUMAB
     Indication: Chordoma
     Dosage: FREQUENCY : MONTHLY;?
     Route: 042
     Dates: start: 20210809, end: 20210929
  2. RELATLIMAB [Suspect]
     Active Substance: RELATLIMAB
     Indication: Chordoma
     Dosage: FREQUENCY : MONTHLY;?
     Route: 042
     Dates: start: 20210609, end: 20210929

REACTIONS (1)
  - Electrocardiogram abnormal [None]

NARRATIVE: CASE EVENT DATE: 20211021
